FAERS Safety Report 8519228-4 (Version None)
Quarter: 2012Q3

REPORT INFORMATION
  Report Type: 
  Country: None (occurrence: None)
  Receive Date: 20120718
  Receipt Date: 20120710
  Transmission Date: 20120928
  Serious: Yes (Hospitalization)
  Sender: FDA-Public Use
  Company Number: US-JNJFOC-20120704767

PATIENT
  Age: 9 Decade
  Sex: Female

DRUGS (7)
  1. XARELTO [Suspect]
     Indication: ATRIAL FIBRILLATION
     Route: 048
  2. HYDROCHLOROTHIAZIDE [Concomitant]
  3. LOPRESSOR [Concomitant]
  4. XARELTO [Suspect]
     Indication: CEREBROVASCULAR ACCIDENT PROPHYLAXIS
     Route: 048
  5. ZOCOR [Concomitant]
  6. QUESTRAN [Concomitant]
  7. AVAPRO [Concomitant]

REACTIONS (3)
  - INTERNATIONAL NORMALISED RATIO INCREASED [None]
  - ATRIAL FIBRILLATION [None]
  - HAEMATURIA [None]
